FAERS Safety Report 5284946-0 (Version None)
Quarter: 2007Q2

REPORT INFORMATION
  Report Type: 
  Country: None (occurrence: None)
  Receive Date: 20070403
  Receipt Date: 20070327
  Transmission Date: 20071010
  Serious: Yes (Hospitalization, Other)
  Sender: FDA-Public Use
  Company Number: US-BRISTOL-MYERS SQUIBB COMPANY-13685540

PATIENT
  Age: 59 Year
  Sex: Female

DRUGS (13)
  1. ATAZANAVIR SULFATE [Suspect]
     Indication: HIV INFECTION
     Dosage: THERAPY INTERRUPTED ON ADMISSION 02-JAN-2006, RESTARTED ON 12-JAN-2006.
     Dates: start: 20051101
  2. AZITHROMYCIN [Suspect]
     Indication: PROPHYLAXIS
     Route: 048
     Dates: start: 20050802, end: 20060103
  3. AMIODARONE HCL [Suspect]
     Route: 041
     Dates: start: 20060103, end: 20060103
  4. LAMIVUDINE [Concomitant]
     Indication: HIV INFECTION
     Dosage: THERAPY INTERRUPTED ON ADMISSION 02-JAN-2006, RESTARTED ON 12-JAN-2006.
     Dates: start: 20051115
  5. ZIDOVUDINE [Concomitant]
     Indication: HIV INFECTION
     Dosage: THERAPY INTERRUPTED ON ADMISSION 02-JAN-2006, RESTARTED ON 12-JAN-2006.
     Dates: start: 20051115
  6. PHENYTOIN [Concomitant]
     Route: 048
  7. ESOMEPRAZOLE MAGNESIUM [Concomitant]
     Route: 048
  8. ATORVASTATIN CALCIUM [Concomitant]
     Route: 048
  9. VALSARTAN [Concomitant]
     Route: 048
  10. ASPIRIN [Concomitant]
     Route: 048
  11. ISOSORBIDE DINITRATE [Concomitant]
     Route: 048
  12. HYDRALAZINE HCL [Concomitant]
     Route: 048
  13. SULFAMETHOXAZOLE AND TRIMETHOPRIM [Concomitant]

REACTIONS (4)
  - CONGESTIVE CARDIOMYOPATHY [None]
  - ELECTROCARDIOGRAM QT CORRECTED INTERVAL PROLONGED [None]
  - TORSADE DE POINTES [None]
  - VENTRICULAR TACHYCARDIA [None]
